FAERS Safety Report 20497558 (Version 1)
Quarter: 2022Q1

REPORT INFORMATION
  Report Type: Spontaneous
  Country: US (occurrence: US)
  Receive Date: 20220221
  Receipt Date: 20220221
  Transmission Date: 20220423
  Serious: Yes (Hospitalization)
  Sender: FDA-Public Use
  Company Number: US-IPCA LABORATORIES LIMITED-IPC-2022-US-000230

PATIENT

DRUGS (15)
  1. WARFARIN [Interacting]
     Active Substance: WARFARIN
     Indication: Deep vein thrombosis
     Dosage: 25 MILLIGRAM, QD
     Route: 065
     Dates: start: 20210421, end: 20210630
  2. WARFARIN [Interacting]
     Active Substance: WARFARIN
     Dosage: 7.5 MILLIGRAM
     Route: 065
     Dates: start: 20210706
  3. WARFARIN [Interacting]
     Active Substance: WARFARIN
     Dosage: 20 MILLIGRAM, QD
     Route: 065
     Dates: start: 20210708, end: 20210713
  4. WARFARIN [Interacting]
     Active Substance: WARFARIN
     Dosage: 22.5 MILLIGRAM, QD
     Route: 065
     Dates: start: 20210726, end: 20210803
  5. WARFARIN [Interacting]
     Active Substance: WARFARIN
     Dosage: 25 MILLIGRAM, QD
     Route: 065
     Dates: start: 20210811, end: 20210921
  6. BAZA ANTIFUNGAL [Interacting]
     Active Substance: MICONAZOLE NITRATE
     Indication: Rash
     Dosage: UNK, QD
     Route: 061
  7. BAZA ANTIFUNGAL [Interacting]
     Active Substance: MICONAZOLE NITRATE
     Dosage: UNK, TID
     Route: 061
  8. HYDROXYZINE [Concomitant]
     Active Substance: HYDROXYZINE HYDROCHLORIDE
     Indication: Product used for unknown indication
     Dosage: UNK
     Route: 065
  9. INSULIN LISPRO [Concomitant]
     Active Substance: INSULIN LISPRO
     Indication: Product used for unknown indication
     Dosage: UNK
     Route: 065
  10. INSULIN GLARGINE [Concomitant]
     Active Substance: INSULIN GLARGINE
     Indication: Product used for unknown indication
     Dosage: UNK
     Route: 065
  11. LOVASTATIN [Concomitant]
     Active Substance: LOVASTATIN
     Indication: Product used for unknown indication
     Dosage: UNK
     Route: 065
  12. NEOSPORIN [Concomitant]
     Active Substance: BACITRACIN ZINC\NEOMYCIN SULFATE\POLYMYXIN B SULFATE
     Indication: Product used for unknown indication
     Dosage: UNK
     Route: 061
  13. LIDOCAINE 4% [Concomitant]
     Active Substance: LIDOCAINE
     Indication: Product used for unknown indication
     Dosage: UNK
     Route: 065
  14. VITAMIN D3 [Concomitant]
     Active Substance: CHOLECALCIFEROL
     Indication: Product used for unknown indication
     Dosage: UNK
     Route: 065
  15. AMLODIPINE [Concomitant]
     Active Substance: AMLODIPINE BESYLATE
     Indication: Product used for unknown indication
     Dosage: UNK
     Route: 065

REACTIONS (4)
  - Ecchymosis [Recovering/Resolving]
  - Peripheral swelling [Recovering/Resolving]
  - International normalised ratio increased [Recovering/Resolving]
  - Drug interaction [Unknown]
